FAERS Safety Report 25619962 (Version 2)
Quarter: 2025Q4

REPORT INFORMATION
  Report Type: Spontaneous
  Country: US (occurrence: US)
  Receive Date: 20250730
  Receipt Date: 20251008
  Transmission Date: 20260117
  Serious: Yes (Other)
  Sender: SANOFI AVENTIS
  Company Number: US-SA-2025SA220909

PATIENT
  Age: 67 Year
  Sex: Female

DRUGS (4)
  1. DUPIXENT [Suspect]
     Active Substance: DUPILUMAB
     Indication: Chronic obstructive pulmonary disease
     Dosage: 300 MG, QOW
     Route: 058
     Dates: start: 20250530
  2. OXYGEN [Concomitant]
     Active Substance: OXYGEN
     Dosage: 4 L
  3. OXYGEN [Concomitant]
     Active Substance: OXYGEN
     Dosage: 2 L, PRN
  4. OXYGEN [Concomitant]
     Active Substance: OXYGEN
     Dosage: 3 L

REACTIONS (4)
  - Metabolic surgery [Unknown]
  - Weight decreased [Unknown]
  - Asthenia [Unknown]
  - Dyspnoea [Unknown]

NARRATIVE: CASE EVENT DATE: 20250101
